FAERS Safety Report 8517102-0 (Version None)
Quarter: 2012Q3

REPORT INFORMATION
  Report Type: 
  Country: None (occurrence: None)
  Receive Date: 20120718
  Receipt Date: 20120713
  Transmission Date: 20120928
  Serious: Yes (Other)
  Sender: FDA-Public Use
  Company Number: US-PFIZER INC-2012170824

PATIENT

DRUGS (1)
  1. LIPITOR [Suspect]

REACTIONS (2)
  - ACCIDENT AT WORK [None]
  - ARTHRITIS [None]
